FAERS Safety Report 26143713 (Version 1)
Quarter: 2025Q4

REPORT INFORMATION
  Report Type: Spontaneous
  Country: US (occurrence: US)
  Receive Date: 20251211
  Receipt Date: 20251211
  Transmission Date: 20260118
  Serious: No
  Sender: ALVOGEN
  Company Number: None

PATIENT

DRUGS (2)
  1. LEVOTHYROXINE [Suspect]
     Active Substance: LEVOTHYROXINE
     Indication: Product used for unknown indication
     Dosage: 112 MCG/DAY, EXPIRATION DATE: 31-MAY-2027, 24008, REFILL OF EXISTING PRESCRIPTION ON 09-APR-2025
     Dates: start: 20250423, end: 202507
  2. LEVOTHYROXINE [Suspect]
     Active Substance: LEVOTHYROXINE
     Indication: Product used for unknown indication
     Dosage: 112 MCG/DAY, EXPIRATION DATE: JUL-2027, 12179; GOT A NEW PRESCRIPTION ON 10-JUL-2025
     Dates: start: 20250712

REACTIONS (5)
  - Brain fog [Recovering/Resolving]
  - Thyroxine free increased [Unknown]
  - Blood thyroid stimulating hormone decreased [Unknown]
  - Product substitution issue [Unknown]
  - Therapeutic response changed [Unknown]

NARRATIVE: CASE EVENT DATE: 20250101
